FAERS Safety Report 9621885 (Version 2)
Quarter: 2013Q4

REPORT INFORMATION
  Report Type: Spontaneous
  Country: BR (occurrence: BR)
  Receive Date: 20131015
  Receipt Date: 20131024
  Transmission Date: 20140711
  Serious: Yes (Hospitalization)
  Sender: FDA-Public Use
  Company Number: BR-PFIZER INC-2013290860

PATIENT
  Age: 82 Year
  Sex: Male
  Weight: 69 kg

DRUGS (7)
  1. LIPITOR [Suspect]
     Indication: BLOOD CHOLESTEROL
     Dosage: 80 MG (1 FILM COATED TABLETS), ONCE DAILY
     Route: 048
     Dates: start: 20110123
  2. LIPITOR [Suspect]
     Dosage: 40 MG (1 FILM COATED TABLETS), ONCE DAILY
     Route: 048
  3. ASPIRINA PREVENT [Concomitant]
     Dosage: 100 MG, DAILY
     Dates: start: 2010
  4. ATENOLOL [Concomitant]
     Indication: HEART RATE ABNORMAL
     Dosage: 50 MG (1 CAPSULE), ONCE DAILY
     Dates: start: 2010
  5. CEBRALAT [Concomitant]
     Dosage: UNK
     Dates: start: 2009
  6. GLIMEPIRIDE [Concomitant]
     Indication: BLOOD GLUCOSE ABNORMAL
     Dosage: 2 MG (1 CAPSULE), ONCE DAILY
     Dates: start: 2009
  7. MONOCORDIL [Concomitant]
     Dosage: UNK
     Dates: start: 2008

REACTIONS (1)
  - Cardiac disorder [Not Recovered/Not Resolved]
